FAERS Safety Report 9157267 (Version 1)
Quarter: 2013Q1

REPORT INFORMATION
  Report Type: Spontaneous
  Country: US (occurrence: US)
  Receive Date: 20130312
  Receipt Date: 20130312
  Transmission Date: 20140127
  Serious: Yes (Hospitalization, Other)
  Sender: FDA-Public Use
  Company Number: US-PFIZER INC-2013083732

PATIENT
  Sex: Female

DRUGS (1)
  1. CHANTIX [Suspect]
     Indication: SMOKING CESSATION THERAPY
     Dosage: UNK

REACTIONS (6)
  - Cerebral haemorrhage [Unknown]
  - Grand mal convulsion [Unknown]
  - Head injury [Unknown]
  - Depression [Unknown]
  - Anxiety [Unknown]
  - Suicidal ideation [Unknown]
